FAERS Safety Report 6704230-5 (Version None)
Quarter: 2010Q2

REPORT INFORMATION
  Report Type: 
  Country: None (occurrence: None)
  Receive Date: 20100430
  Receipt Date: 20100421
  Transmission Date: 20101027
  Serious: Yes (Other)
  Sender: FDA-Public Use
  Company Number: CA-JNJFOC-20100403851

PATIENT
  Sex: Female
  Weight: 82 kg

DRUGS (12)
  1. REMICADE [Suspect]
     Indication: RHEUMATOID ARTHRITIS
     Route: 042
  2. REMICADE [Suspect]
     Route: 042
  3. ERYTHROMYCIN [Concomitant]
  4. NAPROXEN [Concomitant]
  5. FOLIC ACID [Concomitant]
  6. ATROVENT [Concomitant]
  7. ADVAIR DISKUS 100/50 [Concomitant]
  8. PREDNISONE [Concomitant]
  9. RELAFEN [Concomitant]
  10. METHOTREXATE [Concomitant]
     Route: 058
  11. ZANTAC [Concomitant]
  12. HYDROMORPHONE HCL [Concomitant]

REACTIONS (2)
  - CATARACT [None]
  - RESPIRATORY TRACT INFECTION [None]
